FAERS Safety Report 12774328 (Version 2)
Quarter: 2016Q4

REPORT INFORMATION
  Report Type: Spontaneous
  Country: NL (occurrence: NL)
  Receive Date: 20160923
  Receipt Date: 20161004
  Transmission Date: 20170207
  Serious: Yes (Hospitalization)
  Sender: FDA-Public Use
  Company Number: NL-TEVA-693427ACC

PATIENT
  Age: 82 Year
  Sex: Male
  Weight: 88 kg

DRUGS (9)
  1. MACROGOL/ZOUTEN PDR V DRANK (MOVIC/MOLAX/LAXT/GEN) [Concomitant]
     Dosage: 2 DOSAGE FORMS DAILY; 2X1
     Route: 048
     Dates: start: 20160726, end: 20160906
  2. GENTAMICIN. [Interacting]
     Active Substance: GENTAMICIN
     Indication: INFECTION
     Dosage: 270 IU/KG DAILY; 1 TIME PER DAY 270 MG
     Route: 042
     Dates: start: 20160728, end: 20160829
  3. TAMSULOSINE TABLET MGA 0,4MG [Concomitant]
     Dosage: .4 MILLIGRAM DAILY; 1X1
     Route: 048
     Dates: start: 20160625, end: 20160906
  4. LISINOPRIL TABLET 5MG [Concomitant]
     Dosage: 5 MILLIGRAM DAILY;
     Route: 048
     Dates: start: 20160811, end: 20160906
  5. AMOXICILLIN INJECTIEPOEDER 1000MG [Suspect]
     Active Substance: AMOXICILLIN
     Indication: INFECTION
     Dosage: 6 GRAM DAILY; 6 GRAM
     Route: 042
     Dates: start: 20160728, end: 20160902
  6. GABAPENTINE CAPSULE 100MG [Concomitant]
     Dosage: 200 MILLIGRAM DAILY; 2X1
     Route: 048
     Dates: start: 20160811, end: 20160823
  7. ESOMEPRAZOL CAPSULE MSR 20MG [Concomitant]
     Dosage: 20 MILLIGRAM DAILY; 1X1
     Route: 048
     Dates: start: 20160811, end: 20160823
  8. OXYCODON CAPSULE 5MG [Concomitant]
     Dosage: 30 MILLIGRAM DAILY;
     Route: 048
     Dates: start: 20160726, end: 20160906
  9. OXYCODON TABLET MGA 10MG [Concomitant]
     Dosage: 20 MILLIGRAM DAILY; 2X1
     Route: 048
     Dates: start: 20160804, end: 20160906

REACTIONS (2)
  - Drug interaction [Recovered/Resolved]
  - Hypokalaemia [Recovered/Resolved]

NARRATIVE: CASE EVENT DATE: 20160817
